APPROVED DRUG PRODUCT: NALBUPHINE HYDROCHLORIDE
Active Ingredient: NALBUPHINE HYDROCHLORIDE
Strength: 1.5MG/ML
Dosage Form/Route: INJECTABLE;INJECTION
Application: N020200 | Product #001
Applicant: ABBVIE INC
Approved: Mar 12, 1993 | RLD: No | RS: No | Type: DISCN